FAERS Safety Report 13298007 (Version 1)
Quarter: 2017Q1

REPORT INFORMATION
  Report Type: Spontaneous
  Country: FR (occurrence: FR)
  Receive Date: 20170306
  Receipt Date: 20170306
  Transmission Date: 20170428
  Serious: Yes (Hospitalization)
  Sender: FDA-Public Use
  Company Number: FR-ELI_LILLY_AND_COMPANY-FR201702009040

PATIENT
  Age: 46 Year
  Sex: Female

DRUGS (2)
  1. GEMZAR [Suspect]
     Active Substance: GEMCITABINE HYDROCHLORIDE
     Indication: BREAST CANCER METASTATIC
     Dosage: UNK, UNKNOWN
     Route: 042
     Dates: start: 20160331
  2. CARBOPLATINE [Suspect]
     Active Substance: CARBOPLATIN
     Indication: BREAST CANCER METASTATIC
     Dosage: UNK, UNKNOWN
     Route: 042
     Dates: start: 201603

REACTIONS (5)
  - Haemoptysis [Recovered/Resolved]
  - Off label use [Unknown]
  - Bone marrow failure [Recovered/Resolved]
  - White blood cell count increased [Unknown]
  - Purpura [Recovered/Resolved]

NARRATIVE: CASE EVENT DATE: 20160331
